FAERS Safety Report 6653179-5 (Version None)
Quarter: 2010Q1

REPORT INFORMATION
  Report Type: 
  Country: None (occurrence: None)
  Receive Date: 20100326
  Receipt Date: 20100316
  Transmission Date: 20100710
  Serious: Yes (Hospitalization)
  Sender: FDA-Public Use
  Company Number: US-BRISTOL-MYERS SQUIBB COMPANY-15022270

PATIENT
  Age: 79 Year
  Sex: Male
  Weight: 103 kg

DRUGS (4)
  1. TAXOL [Suspect]
     Indication: OESOPHAGEAL SQUAMOUS CELL CARCINOMA
     Dosage: LAST ADMIN DATE:8MAR10
     Dates: start: 20100208
  2. CISPLATIN [Suspect]
     Indication: OESOPHAGEAL SQUAMOUS CELL CARCINOMA
     Dosage: LAST ADMIN DATE:8MAR10
     Dates: start: 20100208
  3. RADIATION THERAPY [Suspect]
     Indication: OESOPHAGEAL SQUAMOUS CELL CARCINOMA
     Dosage: 1 DF= 4140CGY NO OF FRACTION:23 NO OF ELAPSED DAYS:35 LAST ADMIN DATE:12MAR10
     Dates: start: 20100212
  4. ZITHROMAX [Concomitant]
     Indication: RALES

REACTIONS (2)
  - PYREXIA [None]
  - WHITE BLOOD CELL COUNT DECREASED [None]
